FAERS Safety Report 9695562 (Version 1)
Quarter: 2013Q4

REPORT INFORMATION
  Report Type: Spontaneous
  Country: US (occurrence: US)
  Receive Date: 20131119
  Receipt Date: 20131119
  Transmission Date: 20140711
  Serious: No
  Sender: FDA-Public Use
  Company Number: US-009507513-1311USA007886

PATIENT
  Age: 18 Month
  Sex: Female

DRUGS (2)
  1. CLARITIN REDITABS 12HR [Suspect]
     Indication: HYPERSENSITIVITY
     Dosage: 5 MG, QD
     Route: 048
  2. CLARITIN REDITABS 12HR [Suspect]
     Dosage: 10 MG, ONCE
     Route: 048
     Dates: start: 20131107

REACTIONS (3)
  - Overdose [Unknown]
  - Drug administered to patient of inappropriate age [Unknown]
  - Off label use [Unknown]
